FAERS Safety Report 7735566-7 (Version None)
Quarter: 2011Q3

REPORT INFORMATION
  Report Type: 
  Country: None (occurrence: None)
  Receive Date: 20110907
  Receipt Date: 20110823
  Transmission Date: 20111222
  Serious: Yes (Death, Other)
  Sender: FDA-Public Use
  Company Number: JP-WATSON-2011-14093

PATIENT
  Sex: Male

DRUGS (6)
  1. PACLITAXEL [Suspect]
     Indication: MESOTHELIOMA MALIGNANT
     Dosage: UNK
  2. GEMCITABINE [Suspect]
     Indication: MESOTHELIOMA MALIGNANT
     Dosage: UNK
  3. CARBOPLATIN [Suspect]
     Indication: MESOTHELIOMA MALIGNANT
     Dosage: UNK
  4. IRINOTECAN HCL [Suspect]
     Indication: MESOTHELIOMA MALIGNANT
     Dosage: UNK
  5. VINORELBINE [Suspect]
     Indication: MESOTHELIOMA MALIGNANT
     Dosage: UNK
  6. FENTANYL [Suspect]
     Indication: MESOTHELIOMA MALIGNANT
     Dosage: UNK

REACTIONS (1)
  - INTERSTITIAL LUNG DISEASE [None]
